FAERS Safety Report 18468395 (Version 2)
Quarter: 2021Q1

REPORT INFORMATION
  Report Type: Spontaneous
  Country: US (occurrence: US)
  Receive Date: 20201105
  Receipt Date: 20210106
  Transmission Date: 20210419
  Serious: Yes (Hospitalization)
  Sender: FDA-Public Use
  Company Number: US-TEVA-2020-US-1843894

PATIENT
  Age: 45 Year
  Sex: Male

DRUGS (9)
  1. ETHAMBUTOL [Suspect]
     Active Substance: ETHAMBUTOL HYDROCHLORIDE
     Indication: DRUG THERAPY
     Route: 065
  2. COTRIMOXAZOLE [Suspect]
     Active Substance: SULFAMETHOXAZOLE\TRIMETHOPRIM
     Indication: NOCARDIOSIS
     Route: 042
  3. ETHAMBUTOL [Suspect]
     Active Substance: ETHAMBUTOL HYDROCHLORIDE
     Indication: DRUG THERAPY
     Route: 065
  4. PYRAZINAMIDE. [Suspect]
     Active Substance: PYRAZINAMIDE
     Indication: DRUG THERAPY
     Route: 065
  5. CEFTRIAXONE. [Suspect]
     Active Substance: CEFTRIAXONE
     Indication: NOCARDIOSIS
     Route: 042
  6. AMIKACIN. [Suspect]
     Active Substance: AMIKACIN
     Indication: NOCARDIOSIS
     Route: 042
  7. RIFAMPIN. [Suspect]
     Active Substance: RIFAMPIN
     Indication: DRUG THERAPY
     Route: 065
  8. BICTEGRAVIR/EMTRICITABINE/TENOFOVIR?ALAFENAMIDE [Suspect]
     Active Substance: BICTEGRAVIR\EMTRICITABINE\TENOFOVIR ALAFENAMIDE
     Indication: ANTIRETROVIRAL THERAPY
     Route: 065
  9. IMIPENEM [Suspect]
     Active Substance: IMIPENEM
     Indication: NOCARDIOSIS
     Route: 065

REACTIONS (2)
  - Immune reconstitution inflammatory syndrome [Recovering/Resolving]
  - Seizure [Recovered/Resolved]
